FAERS Safety Report 13575332 (Version 2)
Quarter: 2017Q2

REPORT INFORMATION
  Report Type: Report from Study
  Country: None (occurrence: CH)
  Receive Date: 20170524
  Receipt Date: 20170526
  Transmission Date: 20170830
  Serious: Yes (Hospitalization)
  Sender: FDA-Public Use
  Company Number: CH-ABBVIE-17K-151-1984155-00

PATIENT
  Age: 69 Year
  Sex: Male

DRUGS (2)
  1. DUODOPA [Suspect]
     Active Substance: CARBIDOPA\LEVODOPA
     Dosage: MORNING DOSE 16ML, CONTINUOUS RATE DAY 3.6ML/H, EXTRA DOSE 1.8ML
     Route: 050
     Dates: start: 20120719
  2. DUODOPA [Suspect]
     Active Substance: CARBIDOPA\LEVODOPA
     Indication: PRODUCT USED FOR UNKNOWN INDICATION
     Dosage: MORNING DOSE 16ML, CONTINUOUS RATE DAY 3.6ML/H, EXTRA DOSE 1.8ML
     Route: 050
     Dates: start: 20120716, end: 20120719

REACTIONS (4)
  - Device breakage [Recovered/Resolved]
  - Road traffic accident [Unknown]
  - Device dislocation [Recovered/Resolved]
  - Rib fracture [Not Recovered/Not Resolved]

NARRATIVE: CASE EVENT DATE: 20170519
